FAERS Safety Report 9777525 (Version 2)
Quarter: 2013Q4

REPORT INFORMATION
  Report Type: Report from Study
  Country: CL (occurrence: CL)
  Receive Date: 20131222
  Receipt Date: 20131226
  Transmission Date: 20140711
  Serious: Yes (Hospitalization, Other)
  Sender: FDA-Public Use
  Company Number: PHHY2013CL149861

PATIENT
  Age: 65 Year
  Sex: Male

DRUGS (1)
  1. EXFORGE [Suspect]
     Dosage: UNK UKN, UNK

REACTIONS (2)
  - Hepatic cancer [Not Recovered/Not Resolved]
  - Colon cancer metastatic [Recovering/Resolving]
